FAERS Safety Report 9854240 (Version 52)
Quarter: 2019Q3

REPORT INFORMATION
  Report Type: Report from Study
  Country: CA (occurrence: CA)
  Receive Date: 20140130
  Receipt Date: 20190930
  Transmission Date: 20191005
  Serious: Yes (Other)
  Sender: FDA-Public Use
  Company Number: CA-ROCHE-1265088

PATIENT
  Age: 72 Year
  Sex: Female
  Weight: 85 kg

DRUGS (13)
  1. TYLENOL [Concomitant]
     Active Substance: ACETAMINOPHEN
     Indication: RHEUMATOID ARTHRITIS
     Route: 065
  2. ACTEMRA [Suspect]
     Active Substance: TOCILIZUMAB
     Indication: RHEUMATOID ARTHRITIS
     Dosage: LAST INFUSION : 22/JUL/2013
     Route: 042
     Dates: start: 20130527
  3. ACTEMRA [Suspect]
     Active Substance: TOCILIZUMAB
     Dosage: DATE OF DOSE: 09/DEC/2014, 06/JAN/2015, 03/FEB/2015, 04/MAR/2015
     Route: 042
     Dates: start: 20140812
  4. PREDNISONE. [Concomitant]
     Active Substance: PREDNISONE
     Indication: RHEUMATOID ARTHRITIS
  5. ACETYLSALICYLIC ACID [Concomitant]
     Active Substance: ASPIRIN
  6. FUROSEMIDE. [Concomitant]
     Active Substance: FUROSEMIDE
     Route: 065
  7. PANTOLOC [PANTOPRAZOLE] [Concomitant]
     Active Substance: PANTOPRAZOLE SODIUM
  8. METOPROLOL TARTRATE. [Concomitant]
     Active Substance: METOPROLOL TARTRATE
  9. ESCITALOPRAM [Concomitant]
     Active Substance: ESCITALOPRAM OXALATE
     Route: 065
  10. ACTEMRA [Suspect]
     Active Substance: TOCILIZUMAB
     Route: 042
     Dates: start: 20180712
  11. PLAQUENIL [Concomitant]
     Active Substance: HYDROXYCHLOROQUINE SULFATE
     Indication: RHEUMATOID ARTHRITIS
     Route: 065
  12. ALEVE [Concomitant]
     Active Substance: NAPROXEN SODIUM
     Route: 065
  13. ACTEMRA [Suspect]
     Active Substance: TOCILIZUMAB
     Route: 042
     Dates: start: 20140319

REACTIONS (30)
  - Neoplasm malignant [Not Recovered/Not Resolved]
  - Rash [Recovered/Resolved]
  - Weight increased [Recovering/Resolving]
  - Weight increased [Not Recovered/Not Resolved]
  - Hypertension [Unknown]
  - Skin laceration [Unknown]
  - Hypertension [Unknown]
  - Heart rate increased [Not Recovered/Not Resolved]
  - Hernia [Not Recovered/Not Resolved]
  - Blood pressure increased [Unknown]
  - White blood cell count decreased [Not Recovered/Not Resolved]
  - Blood pressure systolic increased [Unknown]
  - Tooth infection [Unknown]
  - Vaginal infection [Not Recovered/Not Resolved]
  - Blood pressure fluctuation [Unknown]
  - Bone density decreased [Unknown]
  - Gastrooesophageal reflux disease [Unknown]
  - Herpes zoster [Recovered/Resolved]
  - Disability assessment scale score increased [Not Recovered/Not Resolved]
  - Paraesthesia [Unknown]
  - Inguinal hernia [Not Recovered/Not Resolved]
  - Umbilical hernia [Not Recovered/Not Resolved]
  - Influenza [Not Recovered/Not Resolved]
  - Fluid retention [Unknown]
  - Oxygen saturation decreased [Unknown]
  - Oedema [Not Recovered/Not Resolved]
  - Skin disorder [Unknown]
  - Urinary tract infection [Not Recovered/Not Resolved]
  - Nasopharyngitis [Not Recovered/Not Resolved]
  - Infusion related reaction [Unknown]

NARRATIVE: CASE EVENT DATE: 201307
